FAERS Safety Report 6260167-X (Version None)
Quarter: 2009Q3

REPORT INFORMATION
  Report Type: 
  Country: None (occurrence: None)
  Receive Date: 20090708
  Receipt Date: 20090630
  Transmission Date: 20100115
  Serious: Yes (Congenital Anomaly)
  Sender: FDA-Public Use
  Company Number: A0795565A

PATIENT
  Sex: Male

DRUGS (3)
  1. EPZICOM [Suspect]
     Indication: ANTIVIRAL TREATMENT
     Dates: end: 20080401
  2. FUZEON [Suspect]
     Indication: ANTIVIRAL TREATMENT
     Dates: end: 20080401
  3. KALETRA [Suspect]
     Indication: ANTIVIRAL TREATMENT
     Dates: end: 20080401

REACTIONS (2)
  - DRUG EXPOSURE DURING PREGNANCY [None]
  - SKIN DEPIGMENTATION [None]
